FAERS Safety Report 7032422-7 (Version None)
Quarter: 2010Q4

REPORT INFORMATION
  Report Type: 
  Country: None (occurrence: None)
  Receive Date: 20101005
  Receipt Date: 20090402
  Transmission Date: 20110411
  Serious: Yes (Other)
  Sender: FDA-Public Use
  Company Number: 2009PV000028

PATIENT
  Age: 65 Year
  Sex: Female
  Weight: 54 kg

DRUGS (18)
  1. DEPOCYT [Suspect]
     Indication: LEUKAEMIC INFILTRATION BRAIN
     Dosage: 50 MG;X2;INTH
     Route: 037
     Dates: start: 20090129, end: 20090213
  2. SANDIMMUNE [Suspect]
     Dosage: PO
     Route: 048
  3. DEXAMETHASONE [Concomitant]
  4. CYCLOSPORINE [Concomitant]
  5. PANTOPRAZOLE SODIUM [Concomitant]
  6. BISOPROLOL [Concomitant]
  7. AMLODIPINE [Concomitant]
  8. HYDROCHLOROTHIAZIDE [Concomitant]
  9. ACICLOVIR [Concomitant]
  10. TRIMETHOPRIM + SULFAMETHOXAZOLE [Concomitant]
  11. DIFLUCAN [Concomitant]
  12. ONDANSETRON [Concomitant]
  13. ARA-C [Concomitant]
  14. MITOXANTRONE [Concomitant]
  15. FLUDARABINE [Concomitant]
  16. TREOSULFAN [Concomitant]
  17. ANTI-THYMOCYTE GLOBULIN NOS [Concomitant]
  18. METHOTREXATE [Concomitant]

REACTIONS (10)
  - APHASIA [None]
  - APRAXIA [None]
  - CONSTIPATION [None]
  - DRUG LEVEL ABOVE THERAPEUTIC [None]
  - GENERAL PHYSICAL HEALTH DETERIORATION [None]
  - LEUKAEMIC INFILTRATION BRAIN [None]
  - MALIGNANT NEOPLASM PROGRESSION [None]
  - RENAL FAILURE ACUTE [None]
  - SENSORY DISTURBANCE [None]
  - URINARY RETENTION [None]
